FAERS Safety Report 6221482-9 (Version None)
Quarter: 2009Q2

REPORT INFORMATION
  Report Type: 
  Country: None (occurrence: None)
  Receive Date: 20090610
  Receipt Date: 20080707
  Transmission Date: 20091009
  Serious: Yes (Hospitalization, Other)
  Sender: FDA-Public Use
  Company Number: US-JNJFOC-20080203325

PATIENT
  Sex: Female
  Weight: 65.32 kg

DRUGS (1)
  1. DOXORUBICIN HCL [Suspect]
     Indication: OVARIAN CANCER
     Route: 042

REACTIONS (2)
  - CARBOHYDRATE ANTIGEN 125 INCREASED [None]
  - SMALL INTESTINAL OBSTRUCTION [None]
